FAERS Safety Report 7902965-X (Version None)
Quarter: 2011Q4

REPORT INFORMATION
  Report Type: 
  Country: None (occurrence: None)
  Receive Date: 20111109
  Receipt Date: 20111102
  Transmission Date: 20120403
  Serious: Yes (Death, Other)
  Sender: FDA-Public Use
  Company Number: GB-GENZYME-CLOF-1001880

PATIENT
  Sex: Male

DRUGS (1)
  1. EVOLTRA [Suspect]
     Indication: ACUTE MYELOID LEUKAEMIA
     Dosage: UNK
     Route: 065
     Dates: start: 20070222

REACTIONS (7)
  - PAIN [None]
  - ACUTE MYELOID LEUKAEMIA [None]
  - ABDOMINAL PAIN [None]
  - DIARRHOEA [None]
  - GENERAL PHYSICAL HEALTH DETERIORATION [None]
  - BACTERIAL INFECTION [None]
  - BRONCHOPNEUMONIA [None]
